FAERS Safety Report 4919827-2 (Version None)
Quarter: 2006Q1

REPORT INFORMATION
  Report Type: 
  Country: None (occurrence: None)
  Receive Date: 20060216
  Receipt Date: 20060130
  Transmission Date: 20060701
  Serious: Yes (Hospitalization)
  Sender: FDA-Public Use
  Company Number: DE200601004923

PATIENT
  Age: 51 Year
  Sex: Female

DRUGS (1)
  1. YENTREVE (DULOXETINE HYDROCHLORIDE) CAPSULE [Suspect]
     Indication: STRESS INCONTINENCE
     Dosage: 20 MG, 2/D, ORAL
     Route: 048
     Dates: start: 20060105, end: 20060108

REACTIONS (4)
  - CHILLS [None]
  - MENSTRUATION IRREGULAR [None]
  - NAUSEA [None]
  - VOMITING [None]
